FAERS Safety Report 9119083 (Version 4)
Quarter: 2013Q2

REPORT INFORMATION
  Report Type: Spontaneous
  Country: JP (occurrence: JP)
  Receive Date: 20130226
  Receipt Date: 20130621
  Transmission Date: 20140414
  Serious: Yes (Other)
  Sender: FDA-Public Use
  Company Number: PHHY2013JP017678

PATIENT
  Age: 90 Year
  Sex: Male

DRUGS (8)
  1. EXELON PATCH [Suspect]
     Indication: DEMENTIA ALZHEIMER^S TYPE
     Dosage: 4.5 MG, DAILY
     Route: 062
     Dates: start: 20121116, end: 20130108
  2. EXELON PATCH [Suspect]
     Dosage: 9 MG, DAILY
     Route: 062
     Dates: start: 20130108, end: 20130214
  3. EXELON PATCH [Suspect]
     Dosage: 13.5 MG, DAILY
     Route: 062
     Dates: start: 20130215, end: 20130220
  4. ASPARA POTASSIUM [Concomitant]
     Dosage: 900 MG, UNK
     Route: 048
  5. STROCAIN                           /07285601/ [Concomitant]
     Dosage: 30 MG, UNK
     Route: 048
  6. TAKEPRON [Concomitant]
     Dosage: 15 MG, UNK
     Route: 048
  7. MOHRUS [Concomitant]
     Dosage: 20 MG, UNK
     Route: 062
  8. MUCOSTA [Concomitant]
     Dosage: 300 MG, UNK
     Route: 048

REACTIONS (3)
  - Chronic obstructive pulmonary disease [Unknown]
  - Pulmonary oedema [Unknown]
  - Dyspnoea [Unknown]
